FAERS Safety Report 4285256-0 (Version None)
Quarter: 2004Q1

REPORT INFORMATION
  Report Type: 
  Country: None (occurrence: None)
  Receive Date: 20040202
  Receipt Date: 20040120
  Transmission Date: 20041129
  Serious: Yes (Life-Threatening, Hospitalization)
  Sender: FDA-Public Use
  Company Number: ZA-JNJFOC-20040103751

PATIENT
  Age: 48 Year
  Sex: Female
  Weight: 90 kg

DRUGS (3)
  1. REMICADE [Suspect]
     Indication: RHEUMATOID ARTHRITIS
     Dosage: 5 MG/KG, 1 IN 8 WEEK, INTRAVENOUS
     Route: 042
     Dates: start: 20030320, end: 20031201
  2. METHOTREXATE [Concomitant]
  3. FOLATE (FOLATE SODIUM) [Concomitant]

REACTIONS (2)
  - DISSEMINATED TUBERCULOSIS [None]
  - PULMONARY EMBOLISM [None]
